FAERS Safety Report 10928788 (Version 2)
Quarter: 2015Q2

REPORT INFORMATION
  Report Type: Spontaneous
  Country: US (occurrence: US)
  Receive Date: 20150319
  Receipt Date: 20150524
  Transmission Date: 20150821
  Serious: No
  Sender: FDA-Public Use
  Company Number: US-JNJFOC-20140502839

PATIENT
  Age: 15 Year
  Sex: Male
  Weight: 108 kg

DRUGS (1)
  1. METHYLPHENIDATE HCL (WATSON) [Suspect]
     Active Substance: METHYLPHENIDATE HYDROCHLORIDE
     Indication: ATTENTION DEFICIT/HYPERACTIVITY DISORDER
     Route: 048
     Dates: start: 201404, end: 20140505

REACTIONS (5)
  - Tremor [Unknown]
  - Heart rate increased [Unknown]
  - Product colour issue [Unknown]
  - Intentional product misuse [Unknown]
  - Headache [Unknown]

NARRATIVE: CASE EVENT DATE: 201404
